FAERS Safety Report 6710460-9 (Version None)
Quarter: 2010Q2

REPORT INFORMATION
  Report Type: 
  Country: None (occurrence: None)
  Receive Date: 20100430
  Receipt Date: 20100419
  Transmission Date: 20101027
  Serious: Yes (Disabling)
  Sender: FDA-Public Use
  Company Number: OSCN-NO-1003L-0082

PATIENT
  Age: 59 Year
  Sex: Female

DRUGS (16)
  1. OMNISCAN [Suspect]
     Indication: ACOUSTIC NEUROMA
     Dosage: SEE IMAGE
     Route: 042
     Dates: start: 20051101, end: 20051101
  2. OMNISCAN [Suspect]
     Indication: ACOUSTIC NEUROMA
     Dosage: SEE IMAGE
     Route: 042
     Dates: start: 20061001, end: 20061001
  3. OMNISCAN [Suspect]
     Indication: ACOUSTIC NEUROMA
     Dosage: SEE IMAGE
     Route: 042
     Dates: start: 20061003, end: 20061003
  4. OMNISCAN [Suspect]
     Indication: ACOUSTIC NEUROMA
     Dosage: SEE IMAGE
     Route: 042
     Dates: start: 20071002, end: 20071002
  5. MAGNEVIST [Suspect]
     Indication: ACOUSTIC NEUROMA
     Dosage: 20 MGL SINGLE DOSE, I.V.
     Route: 042
     Dates: start: 20090930, end: 20090930
  6. PERCIPATATED CALCIUM CARBONATE [Concomitant]
  7. LOSARTAN POTASSIUM (NU-LOTAN) [Concomitant]
  8. ACETYLSALICYLIC ACID (BAYASPIRIN) [Concomitant]
  9. FAMOTIDINE (GASTER D) [Concomitant]
  10. CARBOCISTEINE (MUCODYNE) [Concomitant]
  11. DIAZEPAM (CERCINE) [Concomitant]
  12. ALFACALCIDOL (ALFAROL) [Concomitant]
  13. CAREDILOL (ARTIST) [Concomitant]
  14. ADENOSINE TRIPHOSPHATE, DISODIUM SALT (ADETPHOS) [Concomitant]
  15. CYANOCOBOLAMIN (METHYCOBAL) [Concomitant]
  16. WARFARIN SODIUM [Concomitant]

REACTIONS (4)
  - HAEMODIALYSIS [None]
  - JOINT CONTRACTURE [None]
  - NEPHROGENIC SYSTEMIC FIBROSIS [None]
  - PULMONARY FIBROSIS [None]
